FAERS Safety Report 9529780 (Version 1)
Quarter: 2013Q2

REPORT INFORMATION
  Report Type: Spontaneous
  Country: US (occurrence: None)
  Receive Date: 20130402
  Receipt Date: 20130402
  Transmission Date: 20140414
  Serious: No
  Sender: FDA-Public Use
  Company Number: RB-49107-2013

PATIENT
  Age: 4 Year
  Sex: 0
  Weight: 4.54 kg

DRUGS (1)
  1. SUBOXONE [Suspect]
     Indication: ACCIDENTAL EXPOSURE TO PRODUCT
     Dosage: FILM, DOSING DETAILS UNKNOWN ORAL
     Route: 048
     Dates: start: 20130118, end: 20130118

REACTIONS (3)
  - Accidental exposure to product [None]
  - Listless [None]
  - Dyspnoea [None]
